FAERS Safety Report 16654193 (Version 1)
Quarter: 2019Q3

REPORT INFORMATION
  Report Type: Spontaneous
  Country: US (occurrence: US)
  Receive Date: 20190618
  Receipt Date: 20190618
  Transmission Date: 20191004
  Serious: Yes (Other)
  Sender: FDA-Public Use
  Company Number: None

PATIENT
  Age: 60 Year
  Sex: Female

DRUGS (1)
  1. TEMOZOLOMIDE  5MG CAP [Suspect]
     Active Substance: TEMOZOLOMIDE
     Dates: start: 201903

REACTIONS (2)
  - Abdominal distension [None]
  - Alopecia [None]

NARRATIVE: CASE EVENT DATE: 20190506
